FAERS Safety Report 14627550 (Version 1)
Quarter: 2018Q1

REPORT INFORMATION
  Report Type: Spontaneous
  Country: US (occurrence: US)
  Receive Date: 20180312
  Receipt Date: 20180312
  Transmission Date: 20180509
  Serious: No
  Sender: FDA-Public Use
  Company Number: US-MYLANLABS-2018M1011872

PATIENT
  Sex: Female

DRUGS (1)
  1. XULANE [Suspect]
     Active Substance: ETHINYL ESTRADIOL\NORELGESTROMIN
     Indication: CONTRACEPTION
     Dosage: UNK
     Route: 062

REACTIONS (5)
  - Application site rash [Not Recovered/Not Resolved]
  - Drug dose omission [Unknown]
  - Menorrhagia [Recovered/Resolved]
  - Product adhesion issue [Unknown]
  - Polymenorrhoea [Recovered/Resolved]
